FAERS Safety Report 9726373 (Version 3)
Quarter: 2013Q4

REPORT INFORMATION
  Report Type: Spontaneous
  Country: JP (occurrence: None)
  Receive Date: 20131129
  Receipt Date: 20131227
  Transmission Date: 20140711
  Serious: Yes (Hospitalization)
  Sender: FDA-Public Use
  Company Number: DSJ-2013-25740

PATIENT
  Age: 69 Year
  Sex: Male
  Weight: 66.8 kg

DRUGS (11)
  1. OLMETEC [Suspect]
     Indication: HYPERTENSION
     Route: 048
     Dates: start: 20131101, end: 20131107
  2. VONAFEC [Concomitant]
     Indication: BACK PAIN
     Dosage: 50 MG (25 MG,2 IN 1 D)
     Route: 050
     Dates: start: 20131031, end: 20131031
  3. NIFELANTAN (FIFEDIPINE) [Concomitant]
  4. ARTIST (CARVEDILOL) [Concomitant]
  5. ALDACTONE (SPIRONOLACTONE) (SPIRONOLACTONE) [Concomitant]
  6. BAYASPIRIN (ACETYLSALICYLIC ACID) [Concomitant]
  7. FAMOTIDINE (FAMOTIDINE) (FAMOTIDINIE) [Concomitant]
  8. PAMILCON (GLIBENCLAMIDE) [Concomitant]
  9. MAGMITT (MAGNESIUM OXIDE) (MAGNESIUM OXIDE) [Concomitant]
  10. HORDAZOL (CILOSTAZOL) (CILOSTAZOL) [Concomitant]
  11. URINORM (BENZBROMARONE) (BREZBROMARONE) [Concomitant]

REACTIONS (8)
  - Gastrointestinal disorder [None]
  - Liver disorder [None]
  - Aspartate aminotransferase increased [None]
  - Alanine aminotransferase increased [None]
  - Blood bilirubin increased [None]
  - Hepatitis acute [None]
  - Chest pain [None]
  - Drug-induced liver injury [None]
